FAERS Safety Report 11772777 (Version 1)
Quarter: 2015Q4

REPORT INFORMATION
  Report Type: Spontaneous
  Country: US (occurrence: US)
  Receive Date: 20151124
  Receipt Date: 20151124
  Transmission Date: 20160304
  Serious: Yes (Hospitalization)
  Sender: FDA-Public Use
  Company Number: US-MALLINCKRODT-T201503325

PATIENT
  Age: 37 Year
  Sex: Male
  Weight: 128 kg

DRUGS (4)
  1. IRON [Concomitant]
     Active Substance: IRON
  2. MULTIVITAMIN [Concomitant]
     Active Substance: VITAMINS
  3. GABLOFEN [Suspect]
     Active Substance: BACLOFEN
     Indication: MUSCLE SPASTICITY
     Dosage: 968.4 MCG/DAY
     Route: 037
     Dates: start: 200904
  4. CARDURA [Concomitant]
     Active Substance: DOXAZOSIN MESYLATE

REACTIONS (2)
  - Drug withdrawal syndrome [Recovered/Resolved]
  - Device issue [Recovered/Resolved]

NARRATIVE: CASE EVENT DATE: 20150305
